FAERS Safety Report 6342765-8 (Version None)
Quarter: 2009Q3

REPORT INFORMATION
  Report Type: 
  Country: None (occurrence: None)
  Receive Date: 20090908
  Receipt Date: 20090309
  Transmission Date: 20100115
  Serious: No
  Sender: FDA-Public Use
  Company Number: JP-ROCHE-618259

PATIENT
  Sex: Female

DRUGS (8)
  1. TAMIFLU [Suspect]
     Indication: INFLUENZA
     Route: 048
     Dates: start: 20090101, end: 20090101
  2. ADOAIR [Concomitant]
     Dosage: FORM: INHALANT; ROUTE: RESPIRATORY (INHALATION).
     Route: 055
  3. SULTANOL [Concomitant]
     Dosage: FORM: INHALANT; ROUTE: RESPIRATORY (INHALATION).
     Route: 055
  4. ONON [Concomitant]
     Route: 048
  5. CALONAL [Concomitant]
     Route: 048
  6. TRANSAMIN [Concomitant]
     Route: 048
  7. MEDICON [Concomitant]
     Route: 048
  8. MUCOSTA [Concomitant]
     Route: 048

REACTIONS (2)
  - DRUG EXPOSURE DURING PREGNANCY [None]
  - NO ADVERSE EVENT [None]
